FAERS Safety Report 15937385 (Version 1)
Quarter: 2019Q1

REPORT INFORMATION
  Report Type: Spontaneous
  Country: US (occurrence: US)
  Receive Date: 20190118
  Receipt Date: 20190118
  Transmission Date: 20190417
  Serious: No
  Sender: FDA-Public Use
  Company Number: None

PATIENT
  Age: 22 Year
  Sex: Female
  Weight: 55 kg

DRUGS (1)
  1. ACCUTANE [Suspect]
     Active Substance: ISOTRETINOIN
     Indication: ACNE
     Route: 048
     Dates: start: 20181208, end: 20190109

REACTIONS (7)
  - Pruritus [None]
  - Flatulence [None]
  - Dyspepsia [None]
  - Abdominal rigidity [None]
  - Skin lesion [None]
  - Menstruation irregular [None]
  - Dry skin [None]

NARRATIVE: CASE EVENT DATE: 20190106
